FAERS Safety Report 7011747-5 (Version None)
Quarter: 2010Q3

REPORT INFORMATION
  Report Type: 
  Country: None (occurrence: None)
  Receive Date: 20100923
  Receipt Date: 20090629
  Transmission Date: 20110219
  Serious: No
  Sender: FDA-Public Use
  Company Number: US-WYE-H09955109

PATIENT
  Sex: Female

DRUGS (2)
  1. PREMARIN [Suspect]
     Indication: HORMONE REPLACEMENT THERAPY
     Dosage: STARTED AT 0.3MG INCREASED OVER TIME TO CURRENT DOSE OF 1.25MG DAILY
     Route: 048
     Dates: start: 20081001
  2. LEXAPRO [Concomitant]

REACTIONS (2)
  - ANXIETY [None]
  - PARAESTHESIA [None]
